FAERS Safety Report 16680144 (Version 1)
Quarter: 2019Q3

REPORT INFORMATION
  Report Type: Spontaneous
  Country: SE (occurrence: SE)
  Receive Date: 20190807
  Receipt Date: 20190807
  Transmission Date: 20191004
  Serious: Yes (Other)
  Sender: FDA-Public Use
  Company Number: SE-MYLANLABS-2019M1073256

PATIENT
  Age: 43 Year
  Sex: Female

DRUGS (28)
  1. DIVISUN [Concomitant]
     Active Substance: CHOLECALCIFEROL
     Dosage: UNK
  2. KLYX [Concomitant]
     Active Substance: DOCUSATE SODIUM
     Dosage: UNK
  3. LAMOTRIGIN [Concomitant]
     Active Substance: LAMOTRIGINE
     Dosage: UNK
  4. INOLAXOL                           /00561901/ [Concomitant]
     Dosage: UNK
  5. DULOXETINE. [Concomitant]
     Active Substance: DULOXETINE
     Dosage: UNK
  6. OXIS [Concomitant]
     Active Substance: FORMOTEROL FUMARATE
     Dosage: UNK
  7. MELATONIN [Concomitant]
     Active Substance: MELATONIN
     Dosage: UNK
  8. XERODENT                           /06365801/ [Concomitant]
     Dosage: UNK
  9. OCULAC SDU [Concomitant]
     Dosage: UNK
  10. MOMETASON [Concomitant]
     Active Substance: MOMETASONE FUROATE
     Dosage: UNK
  11. ANDROCUR [Concomitant]
     Active Substance: CYPROTERONE ACETATE
     Dosage: UNK
  12. PEVARYL                            /00418501/ [Concomitant]
     Active Substance: ECONAZOLE NITRATE
     Dosage: UNK
  13. METFORMIN [Suspect]
     Active Substance: METFORMIN HYDROCHLORIDE
     Indication: TYPE 2 DIABETES MELLITUS
     Dosage: 2+0+1+0
     Route: 048
     Dates: end: 20190129
  14. LORATADIN [Concomitant]
     Active Substance: LORATADINE
     Dosage: UNK
  15. DERMOVAT                           /00008503/ [Concomitant]
     Dosage: UNK
  16. FLUCONAZOL [Concomitant]
     Active Substance: FLUCONAZOLE
     Dosage: UNK
  17. LIVOSTIN [Concomitant]
     Active Substance: LEVOCABASTINE HYDROCHLORIDE
     Dosage: UNK
  18. ESTRADOT [Concomitant]
     Active Substance: ESTRADIOL
     Dosage: UNK
  19. IKTORIVIL [Concomitant]
     Active Substance: CLONAZEPAM
     Dosage: UNK
  20. ALVEDON [Concomitant]
     Active Substance: ACETAMINOPHEN
     Dosage: UNK
  21. VI-SIBLIN                          /00029101/ [Concomitant]
     Dosage: UNK
  22. CYPROTERON [Concomitant]
     Dosage: UNK
  23. ORUDIS [Concomitant]
     Active Substance: KETOPROFEN
     Dosage: UNK
  24. PULMICORT TURBUHALER [Concomitant]
     Active Substance: BUDESONIDE
     Dosage: UNK
  25. LOCOID LIPID [Concomitant]
     Dosage: UNK
  26. ALVEDON [Concomitant]
     Active Substance: ACETAMINOPHEN
     Dosage: UNK
  27. ACICLOVIR [Concomitant]
     Active Substance: ACYCLOVIR
     Dosage: UNK
  28. CELEBRA FEM [Concomitant]
     Dosage: UNK

REACTIONS (2)
  - Pruritus [Recovered/Resolved]
  - Hypoglycaemia [Recovered/Resolved]

NARRATIVE: CASE EVENT DATE: 201810
